FAERS Safety Report 19966492 (Version 1)
Quarter: 2021Q4

REPORT INFORMATION
  Report Type: Report from Study
  Country: None (occurrence: US)
  Receive Date: 20211019
  Receipt Date: 20211019
  Transmission Date: 20220303
  Serious: Yes (Hospitalization, Other)
  Sender: FDA-Public Use
  Company Number: US-ABBVIE-21K-163-4120095-00

PATIENT
  Sex: Female

DRUGS (1)
  1. VENCLEXTA [Suspect]
     Active Substance: VENETOCLAX
     Indication: Acute myeloid leukaemia
     Route: 048
     Dates: start: 20191118, end: 20211012

REACTIONS (5)
  - Gastric haemorrhage [Unknown]
  - Acute myeloid leukaemia [Unknown]
  - Blood test abnormal [Unknown]
  - Product quality issue [Unknown]
  - Drug ineffective [Unknown]
